FAERS Safety Report 7536450-4 (Version None)
Quarter: 2011Q2

REPORT INFORMATION
  Report Type: 
  Country: None (occurrence: None)
  Receive Date: 20110602
  Receipt Date: 20110519
  Transmission Date: 20111010
  Serious: No
  Sender: FDA-Public Use
  Company Number: IDA-00535

PATIENT
  Age: 53 Year
  Sex: Female

DRUGS (1)
  1. INDERAL [Suspect]
     Indication: HEART RATE INCREASED
     Dosage: 10 MG TID ORAL FORMULATION: TABLET
     Route: 048
     Dates: start: 20110413, end: 20110428

REACTIONS (5)
  - ABNORMAL SENSATION IN EYE [None]
  - VISION BLURRED [None]
  - REFRACTION DISORDER [None]
  - HYPERPYREXIA [None]
  - WEIGHT INCREASED [None]
